FAERS Safety Report 23759948 (Version 1)
Quarter: 2024Q2

REPORT INFORMATION
  Report Type: Spontaneous
  Country: CA (occurrence: CA)
  Receive Date: 20240419
  Receipt Date: 20240419
  Transmission Date: 20240716
  Serious: Yes (Other)
  Sender: FDA-Public Use
  Company Number: CA-SUN PHARMACEUTICAL INDUSTRIES LTD-2024R1-442086

PATIENT
  Age: 61 Year
  Sex: Male

DRUGS (3)
  1. PREDNISONE [Suspect]
     Active Substance: PREDNISONE
     Indication: Vitiligo
     Dosage: 10 MILLIGRAM, TWO CONSECUTIVE DAYS PER WEEK
     Route: 048
  2. TACROLIMUS [Suspect]
     Active Substance: TACROLIMUS
     Indication: Vitiligo
     Dosage: 0.1 PERCENT, BID
     Route: 065
  3. GINKGO [Suspect]
     Active Substance: GINKGO
     Indication: Product used for unknown indication
     Dosage: UNK (120 MG)
     Route: 065

REACTIONS (2)
  - Therapeutic response decreased [Unknown]
  - Disease progression [Unknown]
